FAERS Safety Report 8588853 (Version 2)
Quarter: 2013Q2

REPORT INFORMATION
  Report Type: Spontaneous
  Country: MX (occurrence: None)
  Receive Date: 20120522
  Receipt Date: 20130508
  Transmission Date: 20140414
  Serious: Yes (Death, Other)
  Sender: FDA-Public Use
  Company Number: ENTC2012-0200

PATIENT
  Age: 83 Year
  Sex: Male

DRUGS (4)
  1. STALEVO [Suspect]
     Indication: PARKINSON^S DISEASE
     Dosage: 1 DF ONCE A DAY, 50/12.5/200 MG
     Dates: start: 201204
  2. LEVOTIROXINA [Concomitant]
  3. LIPITOR [Concomitant]
  4. MODURETIC 5-50 [Concomitant]

REACTIONS (5)
  - Respiratory failure [None]
  - Cardiac failure [None]
  - Diet refusal [None]
  - Product quality issue [None]
  - Aphasia [None]
